FAERS Safety Report 15590302 (Version 3)
Quarter: 2018Q4

REPORT INFORMATION
  Report Type: Spontaneous
  Country: JP (occurrence: JP)
  Receive Date: 20181106
  Receipt Date: 20181206
  Transmission Date: 20190205
  Serious: Yes (Hospitalization, Other)
  Sender: FDA-Public Use
  Company Number: JP-009507513-1810JPN001424J

PATIENT
  Age: 74 Year
  Sex: Male
  Weight: 58 kg

DRUGS (11)
  1. PNEUMOVAX NP [Suspect]
     Active Substance: PNEUMOCOCCAL VACCINE, POLYVALENT 23
     Indication: PROPHYLAXIS
     Route: 058
     Dates: start: 20180820, end: 20180820
  2. FLUNITRAZEPAM [Suspect]
     Active Substance: FLUNITRAZEPAM
     Indication: DEPRESSION
     Dosage: UNK
     Route: 048
     Dates: start: 20180706
  3. AMLODIPINE [Suspect]
     Active Substance: AMLODIPINE BESYLATE
     Dosage: UNK
     Route: 048
     Dates: start: 20180302
  4. TAMSULOSIN HYDROCHLORIDE. [Suspect]
     Active Substance: TAMSULOSIN HYDROCHLORIDE
     Dosage: UNK
     Route: 048
     Dates: start: 20180426, end: 20180904
  5. SERTRALINE HYDROCHLORIDE. [Suspect]
     Active Substance: SERTRALINE HYDROCHLORIDE
     Indication: DEPRESSION
     Dosage: UNK
     Route: 048
     Dates: start: 20180504, end: 20180923
  6. ABILIFY [Suspect]
     Active Substance: ARIPIPRAZOLE
     Indication: DEPRESSION
     Dosage: UNK
     Route: 048
     Dates: start: 20180612, end: 20180909
  7. CILOSTAZOL. [Suspect]
     Active Substance: CILOSTAZOL
     Dosage: UNK
     Route: 048
     Dates: start: 20180302, end: 20180911
  8. BESACOLIN [Suspect]
     Active Substance: BETHANECHOL CHLORIDE
     Dosage: UNK
     Route: 048
     Dates: start: 20180406
  9. LEVOTOMIN [Suspect]
     Active Substance: LEVOMEPROMAZINE
     Indication: DEPRESSION
     Dosage: UNK
     Route: 048
     Dates: start: 20180507
  10. ALPRAZOLAM. [Suspect]
     Active Substance: ALPRAZOLAM
     Indication: DEPRESSION
     Dosage: UNK
     Route: 048
     Dates: start: 20180406
  11. REMERON [Suspect]
     Active Substance: MIRTAZAPINE
     Indication: DEPRESSION
     Dosage: UNK
     Route: 048
     Dates: start: 20180302

REACTIONS (5)
  - Drug-induced liver injury [Recovered/Resolved]
  - Petechiae [Recovered/Resolved]
  - Injection site cellulitis [Recovering/Resolving]
  - C-reactive protein increased [Recovered/Resolved]
  - Melaena [Recovered/Resolved]

NARRATIVE: CASE EVENT DATE: 20180821
